FAERS Safety Report 14973159 (Version 1)
Quarter: 2018Q2

REPORT INFORMATION
  Report Type: Spontaneous
  Country: US (occurrence: US)
  Receive Date: 20180514
  Receipt Date: 20180514
  Transmission Date: 20180711
  Serious: No
  Sender: FDA-Public Use
  Company Number: None

PATIENT
  Age: 51 Year
  Sex: Female

DRUGS (1)
  1. STELARA [Suspect]
     Active Substance: USTEKINUMAB
     Indication: PSORIASIS
     Dosage: OTHER FREQUENCY:EVERY 3 MONTHS;?
     Route: 058
     Dates: start: 20170220, end: 20180129

REACTIONS (6)
  - Weight increased [None]
  - Drug dose omission [None]
  - Psoriasis [None]
  - Pulmonary arterial hypertension [None]
  - Chronic obstructive pulmonary disease [None]
  - Respiratory failure [None]

NARRATIVE: CASE EVENT DATE: 20171101
